FAERS Safety Report 24029330 (Version 5)
Quarter: 2025Q1

REPORT INFORMATION
  Report Type: Spontaneous
  Country: JP (occurrence: JP)
  Receive Date: 20240628
  Receipt Date: 20250109
  Transmission Date: 20250409
  Serious: Yes (Death, Other)
  Sender: ABBVIE
  Company Number: JP-ABBVIE-5817814

PATIENT
  Age: 60 Year
  Sex: Male
  Weight: 54 kg

DRUGS (5)
  1. SKYRIZI [Suspect]
     Active Substance: RISANKIZUMAB-RZAA
     Indication: Psoriasis
     Route: 058
     Dates: start: 20220119, end: 20240313
  2. AZELNIDIPINE\OLMESARTAN MEDOXOMIL [Concomitant]
     Active Substance: AZELNIDIPINE\OLMESARTAN MEDOXOMIL
     Indication: Hypertension
     Dosage: 1 TABLET
     Route: 048
  3. TRIPAMIDE [Concomitant]
     Active Substance: TRIPAMIDE
     Indication: Hypertension
     Route: 048
  4. CARVEDILOL [Concomitant]
     Active Substance: CARVEDILOL
     Indication: Hypertension
     Dosage: FORM STRENGTH: 20 MILIGRAM
     Route: 048
  5. FEBUXOSTAT [Concomitant]
     Active Substance: FEBUXOSTAT
     Indication: Hypertension
     Route: 048

REACTIONS (13)
  - Oesophageal adenocarcinoma stage III [Fatal]
  - Oxygen saturation decreased [Unknown]
  - Surgical failure [Unknown]
  - Pneumonia bacterial [Unknown]
  - SARS-CoV-2 test positive [Unknown]
  - Tracheo-oesophageal fistula [Fatal]
  - Cardio-respiratory arrest [Unknown]
  - Ascites [Unknown]
  - Asphyxia [Unknown]
  - Gastrointestinal motility disorder [Unknown]
  - Oesophageal disorder [Unknown]
  - Squamous cell carcinoma [Unknown]
  - Suture rupture [Unknown]

NARRATIVE: CASE EVENT DATE: 20240201
